FAERS Safety Report 16704903 (Version 1)
Quarter: 2019Q3

REPORT INFORMATION
  Report Type: Spontaneous
  Country: DE (occurrence: DE)
  Receive Date: 20190814
  Receipt Date: 20190814
  Transmission Date: 20191004
  Serious: Yes (Hospitalization)
  Sender: FDA-Public Use
  Company Number: DE-ABBVIE-19S-062-2696097-00

PATIENT
  Age: 57 Year
  Sex: Female

DRUGS (5)
  1. FAMENITA [Concomitant]
     Active Substance: PROGESTERONE
     Indication: MENOPAUSAL SYMPTOMS
  2. TESTOGEL DOSIERGEL [Suspect]
     Active Substance: TESTOSTERONE
     Indication: HORMONE LEVEL ABNORMAL
     Dosage: SACHET, UNKNOWN IF 25 MG OR 50 MG, APPLICATION OF VERY SMALL AMOUNT ON THIGHS
     Route: 062
     Dates: start: 201212
  3. TESTOGEL DOSIERGEL [Suspect]
     Active Substance: TESTOSTERONE
     Dosage: SACHET, UNKNOWN IF 25 MG OR 50 MG, APPLICATION OF VERY SMALL AMOUNT ON HER THIGHS
     Route: 062
     Dates: start: 201812, end: 201902
  4. TESTOGEL DOSIERGEL [Suspect]
     Active Substance: TESTOSTERONE
     Indication: MENOPAUSAL SYMPTOMS
     Dosage: SACHET, 25 MG OR 50 MG,
     Route: 062
     Dates: start: 2015
  5. FAMENITA [Concomitant]
     Active Substance: PROGESTERONE
     Indication: HORMONE LEVEL ABNORMAL
     Route: 048
     Dates: start: 2015

REACTIONS (2)
  - Neurofibroma [Recovered/Resolved]
  - Off label use [Recovered/Resolved]
